FAERS Safety Report 6204633-1 (Version None)
Quarter: 2009Q2

REPORT INFORMATION
  Report Type: 
  Country: None (occurrence: None)
  Receive Date: 20090527
  Receipt Date: 20090518
  Transmission Date: 20091009
  Serious: Yes (Hospitalization, Other)
  Sender: FDA-Public Use
  Company Number: AU-SANOFI-SYNTHELABO-A01200905240

PATIENT
  Sex: Male

DRUGS (2)
  1. ASPIRIN [Concomitant]
     Indication: DRUG USE FOR UNKNOWN INDICATION
     Dosage: UNK
     Route: 065
  2. PLAVIX [Suspect]
     Indication: STENT PLACEMENT
     Route: 048
     Dates: start: 20090413, end: 20090511

REACTIONS (6)
  - BLINDNESS [None]
  - GENITAL SWELLING [None]
  - LIP SWELLING [None]
  - RASH GENERALISED [None]
  - RASH PRURITIC [None]
  - SKIN DISCOLOURATION [None]
